FAERS Safety Report 16285920 (Version 3)
Quarter: 2019Q3

REPORT INFORMATION
  Report Type: Spontaneous
  Country: US (occurrence: US)
  Receive Date: 20190508
  Receipt Date: 20190717
  Transmission Date: 20191004
  Serious: No
  Sender: FDA-Public Use
  Company Number: US-009507513-1905USA002857

PATIENT
  Age: 66 Year
  Sex: Male

DRUGS (3)
  1. ASMANEX [Suspect]
     Active Substance: MOMETASONE FUROATE
     Dosage: 1 PUFF ORALLY DAILY
     Dates: end: 2019
  2. ASMANEX [Suspect]
     Active Substance: MOMETASONE FUROATE
     Dosage: 1 PUFF ORALLY DAILY
     Dates: start: 2019
  3. ASMANEX [Suspect]
     Active Substance: MOMETASONE FUROATE
     Dosage: UNK
     Dates: start: 2019, end: 2019

REACTIONS (4)
  - Product quality issue [Unknown]
  - No adverse event [Unknown]
  - Product quality issue [Unknown]
  - Poor quality device used [Unknown]

NARRATIVE: CASE EVENT DATE: 20190429
